FAERS Safety Report 10077214 (Version 2)
Quarter: 2014Q2

REPORT INFORMATION
  Report Type: Spontaneous
  Country: US (occurrence: US)
  Receive Date: 20140414
  Receipt Date: 20140414
  Transmission Date: 20141212
  Serious: No
  Sender: FDA-Public Use
  Company Number: US-BANPHARM-20130948

PATIENT
  Age: 78 Year
  Sex: Female
  Weight: 81.65 kg

DRUGS (8)
  1. ALEVE LIQUID GELS 220MG [Suspect]
     Indication: ARTHRITIS
     Dosage: 1 DF, BID,
     Route: 048
     Dates: start: 2012
  2. NEURONTIN [Concomitant]
  3. TOPROL [Concomitant]
  4. PLAVIX [Concomitant]
  5. AMLODIPINE [Concomitant]
  6. LOSARTAN [Concomitant]
  7. PANTOPRAZOLE [Concomitant]
  8. BAYER LOW DOSE ASPIRIN [Concomitant]

REACTIONS (3)
  - Drug effect decreased [Unknown]
  - Therapeutic response changed [Unknown]
  - Incorrect drug administration duration [Unknown]
